FAERS Safety Report 7788181-3 (Version None)
Quarter: 2011Q3

REPORT INFORMATION
  Report Type: 
  Country: None (occurrence: None)
  Receive Date: 20110927
  Receipt Date: 20110919
  Transmission Date: 20111222
  Serious: Yes (Hospitalization)
  Sender: FDA-Public Use
  Company Number: CIP11001846

PATIENT
  Age: 66 Year
  Sex: Male

DRUGS (13)
  1. ZOCOR [Concomitant]
  2. SALSALATE (SALSALATE) [Concomitant]
  3. ACTONEL [Suspect]
     Indication: OSTEOPENIA
     Dosage: 35 MG ONCE WEEKLY, ORAL
     Route: 048
     Dates: start: 20041215
  4. TENORETIC 100 [Concomitant]
  5. PLENDIL [Concomitant]
  6. TICLID [Concomitant]
  7. RELAFEN [Concomitant]
  8. IMURAN	/00001501/ (AZATHIOPRINE) [Concomitant]
  9. ZETIA [Concomitant]
  10. NORVASC [Concomitant]
  11. FUROSEMIDE [Concomitant]
  12. PREDNISONE [Concomitant]
  13. RELAFEN [Concomitant]

REACTIONS (19)
  - WOUND DEHISCENCE [None]
  - PURULENT DISCHARGE [None]
  - TOOTHACHE [None]
  - SWELLING FACE [None]
  - PAIN IN JAW [None]
  - MASTICATION DISORDER [None]
  - GINGIVAL SWELLING [None]
  - TENDERNESS [None]
  - PROCEDURAL PAIN [None]
  - TREATMENT NONCOMPLIANCE [None]
  - SWELLING [None]
  - CELLULITIS [None]
  - EXCESSIVE GRANULATION TISSUE [None]
  - ALPHA HAEMOLYTIC STREPTOCOCCAL INFECTION [None]
  - WHITE BLOOD CELL COUNT INCREASED [None]
  - DENTAL CARIES [None]
  - OSTEOMYELITIS CHRONIC [None]
  - OSTEONECROSIS OF JAW [None]
  - OSTEOMYELITIS ACUTE [None]
